FAERS Safety Report 4833101-4 (Version None)
Quarter: 2005Q4

REPORT INFORMATION
  Report Type: 
  Country: None (occurrence: None)
  Receive Date: 20051121
  Receipt Date: 20051117
  Transmission Date: 20060501
  Serious: Yes (Other)
  Sender: FDA-Public Use
  Company Number: 200514160EU

PATIENT
  Age: 61 Year
  Sex: Female

DRUGS (5)
  1. NICORETTE [Suspect]
     Dosage: 6UNIT PER DAY
     Route: 002
     Dates: start: 20030101
  2. ANTIHYPERTENSIVE [Concomitant]
  3. LOSARTAN POTASSIUM [Concomitant]
  4. METFORMIN HYDROCHLORIDE [Concomitant]
     Dates: start: 20020101
  5. NIFEDIPINE [Concomitant]

REACTIONS (2)
  - DEPENDENCE [None]
  - MEDICATION ERROR [None]
